FAERS Safety Report 12541161 (Version 1)
Quarter: 2016Q3

REPORT INFORMATION
  Report Type: Spontaneous
  Country: JP (occurrence: JP)
  Receive Date: 20160708
  Receipt Date: 20160708
  Transmission Date: 20161109
  Serious: Yes (Life-Threatening, Other)
  Sender: FDA-Public Use
  Company Number: JP-ASTRAZENECA-2016SE74010

PATIENT
  Age: 41 Year
  Sex: Female

DRUGS (11)
  1. ANTIDEPRESSANT DRUG [Concomitant]
     Active Substance: UNSPECIFIED INGREDIENT
     Indication: DRUG THERAPY
     Dosage: 14.0DF ONCE/SINGLE ADMINISTRATION
     Dates: start: 20160703, end: 20160703
  2. SEDATIVE-HYPNOTIC DRUG/ANTIANXIETY DRUG [Concomitant]
     Dosage: 14.0DF ONCE/SINGLE ADMINISTRATION
     Dates: start: 20160703, end: 20160703
  3. ANTIHYPERTENSIVE DRUG [Concomitant]
     Indication: DRUG THERAPY
     Dosage: 20.0DF ONCE/SINGLE ADMINISTRATION
     Dates: start: 20160703, end: 20160703
  4. DRUG FOR BLOOD AND BODY FLUID [Concomitant]
     Indication: DRUG THERAPY
     Dosage: 19.0DF ONCE/SINGLE ADMINISTRATION
     Dates: start: 20160703, end: 20160703
  5. 2 KINDS OF ANTIEPILEPTIC DRUG [Concomitant]
     Indication: DRUG THERAPY
     Dosage: 28.0DF ONCE/SINGLE ADMINISTRATION
     Dates: start: 20160703, end: 20160703
  6. DRUG FOR DIGESTIVE ORGANS [Concomitant]
     Indication: DRUG THERAPY
     Dosage: 42.0DF ONCE/SINGLE ADMINISTRATION
     Dates: start: 20160703, end: 20160703
  7. ANTACID [Concomitant]
     Active Substance: ALUMINUM HYDROXIDE\CALCIUM CARBONATE\DIMETHICONE\MAGNESIUM HYDROXIDE
     Indication: DRUG THERAPY
     Dosage: 42.0DF ONCE/SINGLE ADMINISTRATION
     Dates: start: 20160703, end: 20160703
  8. 2 KINDS OF ANTIEPILEPTIC DRUG [Concomitant]
     Indication: DRUG THERAPY
     Dosage: 42.0DF ONCE/SINGLE ADMINISTRATION
     Dates: start: 20160703, end: 20160703
  9. SEROQUEL [Suspect]
     Active Substance: QUETIAPINE FUMARATE
     Dosage: 1400.0MG ONCE/SINGLE ADMINISTRATION
     Route: 048
     Dates: start: 20160703, end: 20160703
  10. ANTIPARKINSON DRUG [Concomitant]
     Indication: DRUG THERAPY
     Dosage: 42.0DF ONCE/SINGLE ADMINISTRATION
     Dates: start: 20160703, end: 20160703
  11. CATHARTIC DRUG/ENEMA [Concomitant]
     Indication: DRUG THERAPY
     Dosage: 40.0DF ONCE/SINGLE ADMINISTRATION
     Dates: start: 20160703, end: 20160703

REACTIONS (2)
  - Intentional overdose [Unknown]
  - Suicide attempt [Unknown]

NARRATIVE: CASE EVENT DATE: 20160703
